FAERS Safety Report 19955103 (Version 2)
Quarter: 2021Q4

REPORT INFORMATION
  Report Type: Spontaneous
  Country: JP (occurrence: JP)
  Receive Date: 20211014
  Receipt Date: 20211108
  Transmission Date: 20220303
  Serious: Yes (Death, Life-Threatening, Hospitalization)
  Sender: FDA-Public Use
  Company Number: JP-PFIZER INC-2021819920

PATIENT
  Age: 81 Year
  Sex: Female
  Weight: 38.1 kg

DRUGS (23)
  1. XELJANZ [Suspect]
     Active Substance: TOFACITINIB CITRATE
     Indication: Rheumatoid arthritis
     Dosage: 5 MG, 1X/DAY
     Route: 048
     Dates: start: 20210311
  2. XELJANZ [Suspect]
     Active Substance: TOFACITINIB CITRATE
     Dosage: 5 MG, 2X/DAY (AFTER BREAKFAST AND DINNER)
     Route: 048
     Dates: start: 20210318, end: 20210829
  3. PREDNISOLONE [Suspect]
     Active Substance: PREDNISOLONE
     Indication: Rheumatoid arthritis
     Dosage: 15 MG
  4. PREDNISOLONE [Suspect]
     Active Substance: PREDNISOLONE
     Dosage: 10 MG
  5. PREDNISOLONE [Suspect]
     Active Substance: PREDNISOLONE
     Dosage: 7 MG
  6. PREDNISOLONE [Suspect]
     Active Substance: PREDNISOLONE
     Dosage: 2 MG, 2X/DAY (AFTER BREAKFAST AND LUNCH)
  7. ALFACALCIDOL [Concomitant]
     Active Substance: ALFACALCIDOL
     Indication: Osteoporosis
     Dosage: 0.25 UG, 1X/DAY (AFTER LUNCH)
  8. MIROGABALIN BESYLATE [Concomitant]
     Active Substance: MIROGABALIN BESYLATE
     Indication: Hypoaesthesia
     Dosage: 5 MG, 1X/DAY (AFTER DINNER)
     Dates: start: 20210622
  9. MIROGABALIN BESYLATE [Concomitant]
     Active Substance: MIROGABALIN BESYLATE
     Indication: Back pain
  10. AMITIZA [Concomitant]
     Active Substance: LUBIPROSTONE
     Indication: Constipation
     Dosage: 24 UG, 2X/DAY (AFTER BREAKFAST AND DINNER)
  11. AZULFIDINE EN-TABS [Concomitant]
     Active Substance: SULFASALAZINE
     Indication: Rheumatoid arthritis
     Dosage: 500 MG, 2X/DAY (AFTER BREAKFAST AND DINNER)
  12. CILOSTAZOL [Concomitant]
     Active Substance: CILOSTAZOL
     Indication: Peripheral arterial occlusive disease
     Dosage: 100 MG, 2X/DAY (AFTER BREAKFAST AND DINNER)
  13. ROSUVASTATIN CALCIUM [Concomitant]
     Active Substance: ROSUVASTATIN CALCIUM
     Indication: Hyperlipidaemia
     Dosage: 2.5 MG, 1X/DAY (AFTER DINNER)
  14. SENNOSIDES A AND B [Concomitant]
     Active Substance: SENNOSIDES A AND B
     Indication: Constipation
     Dosage: 24 MG, 1X/DAY (BEFORE BEDTIME)
  15. CALONAL [Concomitant]
     Active Substance: ACETAMINOPHEN
     Indication: Back pain
     Dosage: 400 MG, 3X/DAY (AFTER EACH MEAL)
  16. CYMBALTA [Concomitant]
     Active Substance: DULOXETINE HYDROCHLORIDE
     Indication: Back pain
     Dosage: 20 MG, 1X/DAY (AFTER DINNER)
     Dates: start: 20210625
  17. LINAGLIPTIN [Concomitant]
     Active Substance: LINAGLIPTIN
     Indication: Diabetes mellitus
     Dosage: 5 MG, 1X/DAY (AFTER BREAKFAST)
     Dates: start: 20210701
  18. REPAGLINIDE [Concomitant]
     Active Substance: REPAGLINIDE
     Indication: Mucosal inflammation
     Dosage: 0.25 MG, 2X/DAY (JUST BEFORE LUNCH AND SUPPER)
  19. ASPIRIN\LANSOPRAZOLE [Concomitant]
     Active Substance: ASPIRIN\LANSOPRAZOLE
     Indication: Hyperchlorhydria
     Dosage: 1 DF (TABLET), 1X/DAY (AFTER BREAKFAST)
  20. VALSARTAN [Concomitant]
     Active Substance: VALSARTAN
     Indication: Hypertension
     Dosage: 80 MG, 1X/DAY (AFTER BREAKFAST)
  21. AMLODIPINE BESYLATE [Concomitant]
     Active Substance: AMLODIPINE BESYLATE
     Indication: Hypertension
     Dosage: 5 MG, 1X/DAY (AFTER BREAKFAST)
  22. SODIUM CITRATE [Concomitant]
     Active Substance: SODIUM CITRATE
     Indication: Iron deficiency anaemia
     Dosage: 50 MG, 1X/DAY (BEFORE BEDTIME)
  23. ETANERCEPT BS TY [Concomitant]

REACTIONS (3)
  - Myocardial infarction [Fatal]
  - Sepsis [Recovered/Resolved]
  - Back pain [Unknown]

NARRATIVE: CASE EVENT DATE: 20210619
